FAERS Safety Report 8674849 (Version 5)
Quarter: 2015Q4

REPORT INFORMATION
  Report Type: Spontaneous
  Country: US (occurrence: US)
  Receive Date: 20120720
  Receipt Date: 20151124
  Transmission Date: 20160305
  Serious: Yes (Hospitalization, Other)
  Sender: FDA-Public Use
  Company Number: US-PFIZER INC-2012172728

PATIENT
  Age: 54 Year
  Sex: Female
  Weight: 69.39 kg

DRUGS (10)
  1. LYRICA [Suspect]
     Active Substance: PREGABALIN
     Dosage: 2 DF, DAILY
     Dates: start: 20151106, end: 20151107
  2. LYRICA [Suspect]
     Active Substance: PREGABALIN
     Indication: PERIPHERAL NERVE INJURY
     Dosage: 150MG CAPSULES TWO IN THE MORNING, 150MG IN THE AFTERNOON AND TWO AT EVENING IN A DAY (750MG A DAY)
     Route: 048
     Dates: start: 200712
  3. HYDROCODONE [Suspect]
     Active Substance: HYDROCODONE
     Dosage: UNK,2X/DAY
  4. PROAIR HFA [Concomitant]
     Active Substance: ALBUTEROL SULFATE
     Indication: DYSPNOEA
     Dosage: ONLY USES IT IF SHE HAS A REALLY HARD TIME BREATHING AT NIGHT
  5. FLUTICASONE [Concomitant]
     Active Substance: FLUTICASONE\FLUTICASONE PROPIONATE
     Indication: DYSPNOEA
     Dosage: 50MG PER SPRAY, ONE SPRAY IN EACH NOSTRIL, TAKES ONCE IN A WHILE IF SHE HAS TROUBLE BREATHING
  6. LYRICA [Suspect]
     Active Substance: PREGABALIN
     Indication: BACK DISORDER
     Dosage: 150 MG, AS NEEDED
  7. LYRICA [Suspect]
     Active Substance: PREGABALIN
     Dosage: 1 DF, DAILY
     Dates: start: 20151109
  8. LYRICA [Suspect]
     Active Substance: PREGABALIN
     Dosage: 3 DF, DAILY
  9. MOBIC [Concomitant]
     Active Substance: MELOXICAM
     Indication: ARTHRITIS
     Dosage: 7.5 MG, DAILY
  10. HYDROCODONE [Suspect]
     Active Substance: HYDROCODONE
     Indication: BACK PAIN
     Dosage: TWO IN MORNING, TWO IN AFTERNOON AND ONE AT 8PM)

REACTIONS (9)
  - Rhinorrhoea [Not Recovered/Not Resolved]
  - Dyspnoea [Unknown]
  - Emphysema [Unknown]
  - Stress [Unknown]
  - Hypersensitivity [Not Recovered/Not Resolved]
  - Chest pain [Unknown]
  - Sneezing [Not Recovered/Not Resolved]
  - Pruritus [Not Recovered/Not Resolved]
  - Throat irritation [Not Recovered/Not Resolved]

NARRATIVE: CASE EVENT DATE: 20120628
